FAERS Safety Report 9411645 (Version 1)
Quarter: 2013Q3

REPORT INFORMATION
  Report Type: Report from Study
  Country: CL (occurrence: CL)
  Receive Date: 20130722
  Receipt Date: 20130722
  Transmission Date: 20140515
  Serious: Yes (Death, Hospitalization, Other)
  Sender: FDA-Public Use
  Company Number: CL-ROCHE-1048895

PATIENT
  Age: 56 Year
  Sex: Female
  Weight: 54 kg

DRUGS (1)
  1. XELODA [Suspect]
     Indication: RECTAL CANCER
     Dosage: LAST DOSE ON 16/APR/2013
     Route: 048
     Dates: start: 20120203, end: 20130620

REACTIONS (9)
  - Cerebrovascular accident [Fatal]
  - Platelet count decreased [Not Recovered/Not Resolved]
  - Thrombosis [Recovering/Resolving]
  - Vulvovaginal swelling [Not Recovered/Not Resolved]
  - Wound [Not Recovered/Not Resolved]
  - Paraesthesia [Not Recovered/Not Resolved]
  - Thrombosis [Not Recovered/Not Resolved]
  - Vaginal haemorrhage [Not Recovered/Not Resolved]
  - Wound [Not Recovered/Not Resolved]
